FAERS Safety Report 8519402-7 (Version None)
Quarter: 2012Q3

REPORT INFORMATION
  Report Type: 
  Country: None (occurrence: None)
  Receive Date: 20120718
  Receipt Date: 20120710
  Transmission Date: 20120928
  Serious: Yes (Life-Threatening, Hospitalization)
  Sender: FDA-Public Use
  Company Number: NO-TEVA-347320ISR

PATIENT
  Sex: Female

DRUGS (5)
  1. PREDNISOLONE [Suspect]
     Indication: MUSCULOSKELETAL STIFFNESS
     Route: 048
  2. CALCIGRAN FORTE [Concomitant]
     Indication: OSTEOPOROSIS
     Route: 048
  3. ALENDRONATE SODIUM [Suspect]
     Indication: OSTEOPOROSIS
     Route: 048
  4. ATENOLOL [Concomitant]
     Indication: HYPERTENSION
     Route: 048
  5. ADALAT [Concomitant]
     Indication: HYPERTENSION
     Route: 048

REACTIONS (3)
  - GASTRIC ULCER [None]
  - GASTRIC HAEMORRHAGE [None]
  - ANAEMIA [None]
